FAERS Safety Report 17307552 (Version 1)
Quarter: 2020Q1

REPORT INFORMATION
  Report Type: Spontaneous
  Country: US (occurrence: US)
  Receive Date: 20200106
  Receipt Date: 20200106
  Transmission Date: 20200409
  Serious: Yes (Life-Threatening, Hospitalization)
  Sender: FDA-Public Use
  Company Number: None

PATIENT
  Age: 72 Year
  Sex: Male
  Weight: 101.6 kg

DRUGS (1)
  1. GLYBURIDE/METFORMIN (GLYBURIDE 5MG/METFORMIN 500MG TAB ) [Suspect]
     Active Substance: GLYBURIDE\METFORMIN
     Indication: DIABETES MELLITUS
     Route: 048
     Dates: start: 20091119, end: 20110614

REACTIONS (3)
  - Urosepsis [None]
  - Dehydration [None]
  - Lactic acidosis [None]

NARRATIVE: CASE EVENT DATE: 20110614
